FAERS Safety Report 25474082 (Version 2)
Quarter: 2025Q2

REPORT INFORMATION
  Report Type: Spontaneous
  Country: IT (occurrence: IT)
  Receive Date: 20250624
  Receipt Date: 20250627
  Transmission Date: 20250717
  Serious: No
  Sender: TAKEDA
  Company Number: IT-TAKEDA-2025TUS049422

PATIENT
  Age: 70 Year
  Sex: Female

DRUGS (3)
  1. BORTEZOMIB [Suspect]
     Active Substance: BORTEZOMIB
     Indication: Plasma cell myeloma
  2. PREDNISONE [Suspect]
     Active Substance: PREDNISONE
     Indication: Plasma cell myeloma
  3. MELPHALAN [Suspect]
     Active Substance: MELPHALAN
     Indication: Plasma cell myeloma

REACTIONS (2)
  - Toxicity to various agents [Unknown]
  - Therapeutic product effect incomplete [Unknown]
